FAERS Safety Report 4961615-5 (Version None)
Quarter: 2006Q1

REPORT INFORMATION
  Report Type: 
  Country: None (occurrence: None)
  Receive Date: 20060329
  Receipt Date: 20060314
  Transmission Date: 20060701
  Serious: Yes (Hospitalization)
  Sender: FDA-Public Use
  Company Number: 2006P1000184

PATIENT
  Age: 46 Year
  Sex: Male

DRUGS (9)
  1. NICARDIPINE HYDROCHLORIDE [Suspect]
     Dosage: IV
     Route: 042
  2. LASIX [Suspect]
  3. AUGMENTIN '125' [Suspect]
  4. PERFALGAN (PARACETAMOL) [Suspect]
  5. DIPRIVAN [Suspect]
  6. OMEPRAZOLE [Suspect]
  7. HYPNOVEL [Concomitant]
  8. MORPHINE [Concomitant]
  9. LOVENOX [Concomitant]

REACTIONS (6)
  - BLOOD BILIRUBIN INCREASED [None]
  - BLOOD PRESSURE DECREASED [None]
  - HEPATIC ENZYME INCREASED [None]
  - HEPATIC HAEMATOMA [None]
  - HEPATOMEGALY [None]
  - PERITONEAL EFFUSION [None]
